FAERS Safety Report 8900469 (Version 1)
Quarter: 2012Q4

REPORT INFORMATION
  Report Type: Report from Study
  Country: US (occurrence: US)
  Receive Date: 20121109
  Receipt Date: 20121109
  Transmission Date: 20130627
  Serious: Yes (Hospitalization)
  Sender: FDA-Public Use
  Company Number: US-JNJFOC-20121103813

PATIENT
  Age: 16 Year
  Sex: Female
  Weight: 67.9 kg

DRUGS (12)
  1. REMICADE [Suspect]
     Indication: INFLAMMATORY BOWEL DISEASE
     Route: 042
     Dates: start: 20091231
  2. HUMIRA [Concomitant]
  3. CYCLOBENZAPRINE [Concomitant]
  4. DULOXETINE [Concomitant]
  5. ESOMEPRAZOLE [Concomitant]
  6. FOLIC ACID [Concomitant]
  7. METHOTREXATE [Concomitant]
  8. MULTIVIT [Concomitant]
  9. ORAL CONTRACEPTIVES [Concomitant]
  10. SUCRALFATE [Concomitant]
  11. TRAMADOL [Concomitant]
  12. SUMATRIPTAN [Concomitant]

REACTIONS (1)
  - Back pain [Recovered/Resolved]
